FAERS Safety Report 21307616 (Version 1)
Quarter: 2022Q3

REPORT INFORMATION
  Report Type: Spontaneous
  Country: JP (occurrence: JP)
  Receive Date: 20220908
  Receipt Date: 20220908
  Transmission Date: 20221027
  Serious: Yes (Other)
  Sender: FDA-Public Use
  Company Number: JP-Clinigen Group PLC/ Clinigen Healthcare Ltd-JP-CLGN-22-00366

PATIENT
  Age: 89 Year
  Sex: Female

DRUGS (1)
  1. FOSCAVIR [Suspect]
     Active Substance: FOSCARNET SODIUM
     Indication: Cytomegalovirus enterocolitis
     Dates: start: 20220829

REACTIONS (4)
  - Cardiac failure [Unknown]
  - Oxygen saturation decreased [Unknown]
  - Product use issue [Unknown]
  - Off label use [Unknown]

NARRATIVE: CASE EVENT DATE: 20220830
